FAERS Safety Report 8141381-5 (Version None)
Quarter: 2012Q1

REPORT INFORMATION
  Report Type: 
  Country: None (occurrence: None)
  Receive Date: 20120216
  Receipt Date: 20120209
  Transmission Date: 20120608
  Serious: Yes (Other)
  Sender: FDA-Public Use
  Company Number: PHHY2012MX011980

PATIENT
  Sex: Female

DRUGS (8)
  1. METOPROLOL TARTRATE [Concomitant]
     Indication: COAGULOPATHY
     Dosage: 1 TABLET BY DAY
     Dates: start: 20100501
  2. DIOVAN HCT [Suspect]
     Indication: HYPERTENSION
     Dosage: 1 TABLET (160/12.5 MG) BY DAY
     Route: 048
  3. VIDAXIL [Concomitant]
     Indication: ARRHYTHMIA
     Dosage: 1 TABLET BY DAY
  4. CRESTOR [Concomitant]
     Indication: ULCER
     Dosage: 2 TABLETS BY DAY
     Dates: start: 20100101
  5. CEREC (CHAIRSIDE ECONOMICAL RESTORATION OF ESTHETIC CERAMICS) [Concomitant]
     Dosage: 1 DF, UNK
     Dates: start: 20110501
  6. ALPRAZOLAM [Concomitant]
     Indication: SLEEP DISORDER
     Dosage: 1 TABLET BY DAY
  7. PROTOCOLON [Concomitant]
     Indication: HEART RATE INCREASED
     Dosage: 0.5 DF, UNK
     Dates: start: 20110101
  8. FITPROMETEC [Concomitant]
     Dosage: 0.5 DF, UNK

REACTIONS (3)
  - EMBOLISM [None]
  - ASTHENIA [None]
  - THROMBOSIS [None]
